FAERS Safety Report 18765540 (Version 1)
Quarter: 2021Q1

REPORT INFORMATION
  Report Type: Spontaneous
  Country: NO (occurrence: NO)
  Receive Date: 20210121
  Receipt Date: 20210121
  Transmission Date: 20210419
  Serious: Yes (Hospitalization, Other)
  Sender: FDA-Public Use
  Company Number: NO-ROCHE-2748802

PATIENT
  Age: 46 Year

DRUGS (1)
  1. ALECENSA [Suspect]
     Active Substance: ALECTINIB HYDROCHLORIDE
     Indication: NON-SMALL CELL LUNG CANCER STAGE IV
     Dosage: 1200 MG/DAY
     Route: 065
     Dates: start: 20201231, end: 20210108

REACTIONS (2)
  - Rash erythematous [Unknown]
  - Hepatitis [Unknown]

NARRATIVE: CASE EVENT DATE: 20210108
